FAERS Safety Report 4266944-9 (Version None)
Quarter: 2004Q1

REPORT INFORMATION
  Report Type: 
  Country: None (occurrence: None)
  Receive Date: 20040108
  Receipt Date: 20040108
  Transmission Date: 20041129
  Serious: Yes (Death)
  Sender: FDA-Public Use
  Company Number: None

PATIENT
  Age: 70 Year
  Sex: Male

DRUGS (1)
  1. CORDIS CYPHER DRUG ELUTING STENT [Suspect]

REACTIONS (3)
  - ARTERIAL INJURY [None]
  - IATROGENIC INJURY [None]
  - LACERATION [None]
